FAERS Safety Report 11412137 (Version 2)
Quarter: 2015Q3

REPORT INFORMATION
  Report Type: Spontaneous
  Country: US (occurrence: US)
  Receive Date: 20150821
  Receipt Date: 20150903
  Transmission Date: 20151125
  Serious: No
  Sender: FDA-Public Use
  Company Number: US-ELI_LILLY_AND_COMPANY-US201202008357

PATIENT
  Age: 59 Year
  Sex: Female

DRUGS (4)
  1. HUMALOG MIX75/25 [Suspect]
     Active Substance: INSULIN LISPRO
     Indication: DIABETES MELLITUS
     Dosage: 40 U, EACH MORNING
     Dates: start: 20120223
  2. HUMALOG MIX75/25 [Suspect]
     Active Substance: INSULIN LISPRO
     Dosage: 10 U, EACH EVENING
     Dates: start: 20120223
  3. HUMULIN 70/30 [Suspect]
     Active Substance: INSULIN HUMAN
     Indication: DIABETES MELLITUS
     Dosage: 65 U, EACH MORNING
     Dates: start: 1992
  4. NOVOLOG [Concomitant]
     Active Substance: INSULIN ASPART
     Dosage: UNK

REACTIONS (8)
  - Drug dose omission [Unknown]
  - Feeling abnormal [Unknown]
  - Dyspnoea [Unknown]
  - Blood glucose decreased [Unknown]
  - Nervousness [Unknown]
  - Visual acuity reduced [Not Recovered/Not Resolved]
  - Blood glucose increased [Unknown]
  - Fear [Unknown]

NARRATIVE: CASE EVENT DATE: 20120223
